FAERS Safety Report 9780734 (Version 3)
Quarter: 2014Q1

REPORT INFORMATION
  Report Type: Spontaneous
  Country: IT (occurrence: IT)
  Receive Date: 20131224
  Receipt Date: 20140203
  Transmission Date: 20141002
  Serious: Yes (Other)
  Sender: FDA-Public Use
  Company Number: PHHY2013IT150112

PATIENT
  Age: 66 Year
  Sex: Male

DRUGS (6)
  1. ZOMETA [Suspect]
     Indication: PROSTATE CANCER METASTATIC
     Dosage: 4 MG, EVERY 4 WEEKS
     Route: 042
     Dates: start: 20110901, end: 201206
  2. ZOMETA [Suspect]
     Dosage: 4 MG, EVERY 4 WEEKS
     Route: 042
     Dates: end: 201207
  3. CASODEX [Concomitant]
     Dosage: UNK UKN, UNK
  4. TRALODIE [Concomitant]
     Dosage: UNK UKN, UNK
  5. PRADIF [Concomitant]
     Dosage: UNK UKN, UNK
  6. DECAPEPTYL                              /SCH/ [Concomitant]
     Dosage: 1 DF, (1 POSOLOGIC UNIT)
     Route: 042

REACTIONS (2)
  - Osteonecrosis of jaw [Recovered/Resolved]
  - Pain in jaw [Recovered/Resolved]
